FAERS Safety Report 8644034 (Version 2)
Quarter: 2012Q4

REPORT INFORMATION
  Report Type: 
  Country: AU (occurrence: AU)
  Receive Date: 20120629
  Receipt Date: 20120921
  Transmission Date: 20130627
  Serious: Yes (Other)
  Sender: FDA-Public Use
  Company Number: AU-GLAXOSMITHKLINE-B0807230A

PATIENT
  Age: 74 Year
  Sex: Male
  Weight: 184 kg

DRUGS (10)
  1. DUODART [Suspect]
     Indication: PRODUCT USED FOR UNKNOWN INDICATION
     Route: 065
     Dates: start: 20120606
  2. DIABEX [Concomitant]
     Indication: DIABETES MELLITUS
     Dosage: 1G Twice per day
  3. MAREVAN [Concomitant]
     Indication: ATRIAL FIBRILLATION
     Dosage: 1MG Per day
  4. MAREVAN [Concomitant]
     Indication: ATRIAL FIBRILLATION
     Dosage: 5MG Per day
  5. GLIMEPIRIDE [Concomitant]
     Indication: DIABETES MELLITUS
     Dosage: 4MG Twice per day
  6. GLIMEPIRIDE [Concomitant]
     Indication: DIABETES MELLITUS
     Dosage: 1MG Twice per day
  7. UNKNOWN BLOOD PRESSURE MEDICATION [Concomitant]
     Indication: BLOOD PRESSURE
  8. UNKNOWN ANTIDEPRESSANT [Concomitant]
     Indication: DEPRESSION
  9. SPIRIVA [Concomitant]
     Indication: CHRONIC OBSTRUCTIVE PULMONARY DISEASE
  10. METOPROLOL [Concomitant]
     Indication: BLOOD PRESSURE

REACTIONS (5)
  - Abdominal pain upper [Not Recovered/Not Resolved]
  - Diarrhoea [Unknown]
  - Malaise [Unknown]
  - Dyspnoea [Unknown]
  - Product quality issue [Unknown]
